FAERS Safety Report 9198560 (Version 1)
Quarter: 2013Q1

REPORT INFORMATION
  Report Type: Spontaneous
  Country: DE (occurrence: DE)
  Receive Date: 20130329
  Receipt Date: 20130329
  Transmission Date: 20140127
  Serious: Yes (Death, Hospitalization)
  Sender: FDA-Public Use
  Company Number: DE-ELI_LILLY_AND_COMPANY-DE201303006661

PATIENT
  Sex: Female

DRUGS (4)
  1. FORSTEO [Suspect]
     Indication: OSTEOPOROSIS
     Dosage: UNK, QD
     Route: 058
     Dates: start: 20120312
  2. CALCIUM [Concomitant]
  3. VITAMIN D [Concomitant]
  4. TORASEMID [Concomitant]

REACTIONS (3)
  - Leukaemia [Fatal]
  - Pulmonary oedema [Fatal]
  - Pneumonia [Fatal]
